FAERS Safety Report 4324706-8 (Version None)
Quarter: 2004Q1

REPORT INFORMATION
  Report Type: 
  Country: None (occurrence: None)
  Receive Date: 20040323
  Receipt Date: 20040309
  Transmission Date: 20041129
  Serious: Yes (Other)
  Sender: FDA-Public Use
  Company Number: K200400341

PATIENT
  Age: 33 Year
  Sex: Male
  Weight: 69 kg

DRUGS (7)
  1. CORTISPORIN OPTHALMIC SUSPENSION STERILE (NEOMYCIN, POLYMYXIN, HYDROCO [Suspect]
     Indication: EYE PRURITUS
  2. METFORMIN HCL [Concomitant]
  3. GLICLAZIDE (GLICLAZIDE) [Concomitant]
  4. LOSARTAN (LOSARTAN) [Concomitant]
  5. SERTRALINE HCL [Concomitant]
  6. CLONAZEPAM [Concomitant]
  7. PREDNISOLONE [Concomitant]

REACTIONS (19)
  - BLOOD FOLLICLE STIMULATING HORMONE DECREASED [None]
  - BLOOD LUTEINISING HORMONE DECREASED [None]
  - BLOOD TESTOSTERONE DECREASED [None]
  - BONE DENSITY DECREASED [None]
  - CUSHING'S SYNDROME [None]
  - DEPRESSED MOOD [None]
  - DIABETES MELLITUS NON-INSULIN-DEPENDENT [None]
  - ERECTILE DYSFUNCTION [None]
  - FATIGUE [None]
  - HEADACHE [None]
  - INCREASED TENDENCY TO BRUISE [None]
  - LIBIDO DECREASED [None]
  - MUSCLE ATROPHY [None]
  - MUSCULAR WEAKNESS [None]
  - OEDEMA PERIPHERAL [None]
  - SOCIAL AVOIDANT BEHAVIOUR [None]
  - VISION BLURRED [None]
  - VISUAL ACUITY REDUCED [None]
  - WEIGHT INCREASED [None]
